FAERS Safety Report 10339987 (Version 1)
Quarter: 2014Q3

REPORT INFORMATION
  Report Type: Spontaneous
  Country: US (occurrence: None)
  Receive Date: 20140722
  Receipt Date: 20140722
  Transmission Date: 20150326
  Serious: Yes (Hospitalization, Other)
  Sender: FDA-Public Use
  Company Number: IMP_07732_2014

PATIENT
  Age: 31 Year
  Sex: Male

DRUGS (4)
  1. DEXTROMETHORPHAN [Concomitant]
     Active Substance: DEXTROMETHORPHAN
  2. CHLORPHENIRAMINE [Concomitant]
     Active Substance: CHLORPHENIRAMINE
  3. BUPROPION [Suspect]
     Active Substance: BUPROPION
     Indication: PRODUCT USED FOR UNKNOWN INDICATION
     Dosage: NOT THE PRESCRIBE DOSE, DF
  4. ACETAMINOPHEN. [Concomitant]
     Active Substance: ACETAMINOPHEN

REACTIONS (20)
  - Lethargy [None]
  - Hypotension [None]
  - Ventricular extrasystoles [None]
  - Shock [None]
  - Troponin increased [None]
  - Sinus tachycardia [None]
  - Intentional overdose [None]
  - Electrocardiogram QT prolonged [None]
  - Pyrexia [None]
  - Memory impairment [None]
  - Electrocardiogram QRS complex prolonged [None]
  - Mydriasis [None]
  - Mental status changes [None]
  - Cardiotoxicity [None]
  - Confusional state [None]
  - Generalised tonic-clonic seizure [None]
  - Atrial fibrillation [None]
  - Aspiration bronchial [None]
  - No therapeutic response [None]
  - Laceration [None]
